FAERS Safety Report 21142249 (Version 2)
Quarter: 2022Q3

REPORT INFORMATION
  Report Type: Spontaneous
  Country: KR (occurrence: KR)
  Receive Date: 20220728
  Receipt Date: 20220906
  Transmission Date: 20221026
  Serious: Yes (Other)
  Sender: FDA-Public Use
  Company Number: KR-ASTELLAS-2022US026708

PATIENT
  Age: 6 Decade
  Sex: Female

DRUGS (3)
  1. XOSPATA [Suspect]
     Active Substance: GILTERITINIB
     Indication: Acute myeloid leukaemia refractory
     Dosage: 120 MG, ONCE DAILY (2 WEEKS)
     Route: 065
     Dates: start: 20220701, end: 202207
  2. XOSPATA [Suspect]
     Active Substance: GILTERITINIB
     Indication: FLT3 gene mutation
     Dosage: 80 MG, ONCE DAILY (REDUCED TO 80MG AND WAS TAKEN FOR 1 WEEK , AND THEN DISCONTINUED)
     Route: 065
     Dates: start: 202207, end: 202207
  3. XOSPATA [Suspect]
     Active Substance: GILTERITINIB
     Dosage: 120 MG, ONCE DAILY (AFTER INTERRUPTION OF 80MG , RESTARTED AS 120 MG AND IT IS ONGOING NOW)
     Route: 065

REACTIONS (2)
  - Pneumonia [Recovered/Resolved]
  - Neutropenia [Not Recovered/Not Resolved]

NARRATIVE: CASE EVENT DATE: 20220701
